FAERS Safety Report 9433198 (Version 1)
Quarter: 2013Q3

REPORT INFORMATION
  Report Type: Spontaneous
  Country: BR (occurrence: BR)
  Receive Date: 20130731
  Receipt Date: 20130731
  Transmission Date: 20140515
  Serious: Yes (Hospitalization)
  Sender: FDA-Public Use
  Company Number: BR-ASTRAZENECA-2013SE56428

PATIENT
  Age: 73 Year
  Sex: Female
  Weight: 69 kg

DRUGS (6)
  1. ROSUVASTATIN (GENERIC) [Suspect]
     Indication: BLOOD CHOLESTEROL INCREASED
     Dosage: GENERIC, DAILY
     Route: 065
     Dates: start: 2003
  2. BENICAR ANLO [Concomitant]
     Dates: start: 2008
  3. NEBILET [Concomitant]
     Dates: start: 201201
  4. SUSTRATE [Concomitant]
     Dates: start: 2008
  5. SOMALGIN CARDIO [Concomitant]
     Dates: start: 2011
  6. ASA [Concomitant]
     Dates: start: 2005, end: 2011

REACTIONS (3)
  - Myocardial ischaemia [Recovered/Resolved]
  - Arteriosclerosis coronary artery [Recovered/Resolved]
  - Laboratory test abnormal [Unknown]
